FAERS Safety Report 6053973-8 (Version None)
Quarter: 2009Q1

REPORT INFORMATION
  Report Type: 
  Country: None (occurrence: None)
  Receive Date: 20090127
  Receipt Date: 20090119
  Transmission Date: 20090719
  Serious: Yes (Hospitalization, Other)
  Sender: FDA-Public Use
  Company Number: JP-MERCK-0901USA03422

PATIENT
  Age: 67 Year
  Sex: Female
  Weight: 55 kg

DRUGS (5)
  1. PEPCID RPD [Suspect]
     Route: 048
     Dates: start: 20071102, end: 20080121
  2. SAWACILLIN [Suspect]
     Indication: HELICOBACTER INFECTION
     Route: 048
     Dates: start: 20080116, end: 20080121
  3. TAKEPRON [Concomitant]
     Route: 065
     Dates: start: 20080116, end: 20080121
  4. DEPAS [Concomitant]
     Route: 065
  5. CLARITHROMYCIN [Suspect]
     Indication: HELICOBACTER INFECTION
     Route: 065
     Dates: start: 20080116, end: 20080121

REACTIONS (1)
  - DRUG ERUPTION [None]
